FAERS Safety Report 7073388-3 (Version None)
Quarter: 2010Q4

REPORT INFORMATION
  Report Type: 
  Country: None (occurrence: None)
  Receive Date: 20101021
  Receipt Date: 20101009
  Transmission Date: 20110411
  Serious: Yes (Other)
  Sender: FDA-Public Use
  Company Number: 2010AP002164

PATIENT
  Age: 53 Year
  Sex: Female

DRUGS (1)
  1. LITHIUM CARBONATE CAP [Suspect]
     Indication: MENTAL DISORDER

REACTIONS (4)
  - DIABETES INSIPIDUS [None]
  - NEPHROPATHY [None]
  - RENAL CYST [None]
  - THERAPEUTIC AGENT TOXICITY [None]
